FAERS Safety Report 6648176-X (Version None)
Quarter: 2010Q1

REPORT INFORMATION
  Report Type: 
  Country: None (occurrence: None)
  Receive Date: 20100324
  Receipt Date: 20100317
  Transmission Date: 20100710
  Serious: Yes (Other)
  Sender: FDA-Public Use
  Company Number: JP-SANOFI-AVENTIS-2010SA015362

PATIENT
  Age: 55 Year
  Sex: Male

DRUGS (5)
  1. TAXOTERE [Suspect]
     Indication: METASTASES TO LYMPH NODES
     Dates: start: 20090525, end: 20090525
  2. TAXOTERE [Suspect]
     Dates: start: 20090101, end: 20090101
  3. CISPLATIN [Concomitant]
     Indication: HYPOPHARYNGEAL CANCER
     Dates: start: 20090525, end: 20090525
  4. CISPLATIN [Concomitant]
     Dates: start: 20090101, end: 20090101
  5. FLUOROURACIL [Concomitant]
     Indication: HYPOPHARYNGEAL CANCER
     Dosage: 600 MG/M2 OVER 4 DAYS FROM DAYS 2 TO 5 OF EACH CYCLE
     Dates: start: 20090526, end: 20090529

REACTIONS (2)
  - OESOPHAGEAL OBSTRUCTION [None]
  - PHARYNGEAL DISORDER [None]
